FAERS Safety Report 10723023 (Version 1)
Quarter: 2015Q1

REPORT INFORMATION
  Report Type: Spontaneous
  Country: GB (occurrence: None)
  Receive Date: 20150114
  Receipt Date: 20150114
  Transmission Date: 20150721
  Serious: Yes (Other)
  Sender: FDA-Public Use
  Company Number: 20150016

PATIENT
  Sex: Female

DRUGS (1)
  1. METOJECT (METHOTREXATE SODIUM) [Suspect]
     Active Substance: METHOTREXATE SODIUM

REACTIONS (2)
  - Impaired healing [None]
  - Upper limb fracture [None]
